FAERS Safety Report 7224244-9 (Version None)
Quarter: 2011Q1

REPORT INFORMATION
  Report Type: 
  Country: None (occurrence: None)
  Receive Date: 20110113
  Receipt Date: 20101230
  Transmission Date: 20110831
  Serious: Yes (Other)
  Sender: FDA-Public Use
  Company Number: DK-RANBAXY-2010R1-40864

PATIENT
  Age: 32 Year
  Sex: Female

DRUGS (3)
  1. TRAMADOL HCL [Suspect]
     Indication: HEADACHE
     Dosage: UNK, DAILY
     Route: 065
  2. ACETAMINOPHEN [Suspect]
     Indication: HEADACHE
     Dosage: UNK
     Route: 065
  3. MORPHINE [Suspect]
     Indication: HEADACHE
     Dosage: UNK
     Route: 065

REACTIONS (2)
  - HEADACHE [None]
  - MIGRAINE [None]
